FAERS Safety Report 16482741 (Version 1)
Quarter: 2019Q2

REPORT INFORMATION
  Report Type: Report from Study
  Country: IT (occurrence: IT)
  Receive Date: 20190627
  Receipt Date: 20190627
  Transmission Date: 20190711
  Serious: Yes (Hospitalization)
  Sender: FDA-Public Use
  Company Number: IT-ACCORD-135444

PATIENT
  Age: 86 Year
  Sex: Female

DRUGS (5)
  1. BROMAZEPAM [Interacting]
     Active Substance: BROMAZEPAM
     Indication: INSOMNIA
     Route: 048
  2. SELECTIN [Concomitant]
     Active Substance: PRAVASTATIN
     Dosage: STRENGTH: 20 MG
  3. LASIX [Concomitant]
     Active Substance: FUROSEMIDE
     Dosage: STRENGTH: 25 MG
  4. SODIUM BICARBONATE. [Concomitant]
     Active Substance: SODIUM BICARBONATE
  5. CARBIDOPA/LEVODOPA [Suspect]
     Active Substance: CARBIDOPA\LEVODOPA
     Indication: PARKINSON^S DISEASE
     Route: 048

REACTIONS (2)
  - Drug interaction [Unknown]
  - Sopor [Not Recovered/Not Resolved]

NARRATIVE: CASE EVENT DATE: 20190307
